FAERS Safety Report 9468650 (Version 2)
Quarter: 2013Q3

REPORT INFORMATION
  Report Type: Spontaneous
  Country: FR (occurrence: FR)
  Receive Date: 20130821
  Receipt Date: 20130821
  Transmission Date: 20140515
  Serious: Yes (Other)
  Sender: FDA-Public Use
  Company Number: FR-BRISTOL-MYERS SQUIBB COMPANY-16422388

PATIENT
  Age: 27 Year
  Sex: Female
  Weight: 80 kg

DRUGS (2)
  1. ABILIFY TABS [Suspect]
     Indication: PSYCHOTIC DISORDER
     Dosage: RECEIVING SINCE 3 YEARS ALSO TAKEN 25 MG DAILY
     Route: 048
     Dates: start: 2009, end: 20120227
  2. RISPERDAL [Concomitant]
     Indication: PSYCHOTIC DISORDER
     Route: 065

REACTIONS (3)
  - Pre-eclampsia [Unknown]
  - Pregnancy [Recovered/Resolved]
  - Normal newborn [Unknown]
